FAERS Safety Report 15661340 (Version 1)
Quarter: 2018Q4

REPORT INFORMATION
  Report Type: Spontaneous
  Country: US (occurrence: US)
  Receive Date: 20181127
  Receipt Date: 20181127
  Transmission Date: 20190205
  Serious: Yes (Hospitalization)
  Sender: FDA-Public Use
  Company Number: US-BIOGEN-2018BI00664259

PATIENT
  Age: 12 Year
  Sex: Female
  Weight: 32 kg

DRUGS (1)
  1. SPINRAZA [Suspect]
     Active Substance: NUSINERSEN
     Indication: SPINAL MUSCULAR ATROPHY
     Dosage: 12 MG/ 5 ML
     Route: 037
     Dates: start: 20170510

REACTIONS (1)
  - Pleocytosis [Unknown]

NARRATIVE: CASE EVENT DATE: 20170607
